FAERS Safety Report 20793350 (Version 2)
Quarter: 2023Q1

REPORT INFORMATION
  Report Type: Report from Study
  Country: US (occurrence: US)
  Receive Date: 20220506
  Receipt Date: 20230207
  Transmission Date: 20230417
  Serious: Yes (Other)
  Sender: FDA-Public Use
  Company Number: US-ALNYLAM PHARMACEUTICALS, INC.-ALN-2022-001260

PATIENT

DRUGS (1)
  1. ONPATTRO [Suspect]
     Active Substance: PATISIRAN SODIUM
     Indication: Hereditary neuropathic amyloidosis
     Dosage: UNK
     Route: 042
     Dates: start: 20200406

REACTIONS (5)
  - Schwannoma [Unknown]
  - Diarrhoea [Recovered/Resolved]
  - Poor peripheral circulation [Unknown]
  - Dyspnoea [Unknown]
  - Herpes zoster [Unknown]
